FAERS Safety Report 26083926 (Version 2)
Quarter: 2025Q4

REPORT INFORMATION
  Report Type: Report from Study
  Country: CA (occurrence: CA)
  Receive Date: 20251124
  Receipt Date: 20251217
  Transmission Date: 20260118
  Serious: Yes (Other)
  Sender: ABBVIE
  Company Number: CA-ABBVIE-6557177

PATIENT
  Age: 62 Year
  Sex: Male

DRUGS (6)
  1. VYALEV [Suspect]
     Active Substance: FOSCARBIDOPA\FOSLEVODOPA
     Indication: Product used for unknown indication
     Route: 058
  2. PRAMIPEXOLE [Concomitant]
     Active Substance: PRAMIPEXOLE
     Indication: Product used for unknown indication
  3. MIRTAZAPINE [Concomitant]
     Active Substance: MIRTAZAPINE
     Indication: Product used for unknown indication
  4. LEVODOPA [Concomitant]
     Active Substance: LEVODOPA
     Indication: Product used for unknown indication
  5. ADVIL [Concomitant]
     Active Substance: IBUPROFEN
     Indication: Product used for unknown indication
  6. TYLENOL [Concomitant]
     Active Substance: ACETAMINOPHEN
     Indication: Product used for unknown indication

REACTIONS (1)
  - Deep brain stimulation [Unknown]

NARRATIVE: CASE EVENT DATE: 20251101
